FAERS Safety Report 6670926-7 (Version None)
Quarter: 2010Q2

REPORT INFORMATION
  Report Type: 
  Country: None (occurrence: None)
  Receive Date: 20100406
  Receipt Date: 20100406
  Transmission Date: 20101027
  Serious: Yes (Hospitalization)
  Sender: FDA-Public Use
  Company Number: None

PATIENT
  Age: 37 Year
  Weight: 177 kg

DRUGS (1)
  1. MAFENIDE ACETATE 50GRAM PACKET -MADE TO BE 5 % - [Suspect]
     Dosage: 250ML -5%- 4 TIMES DAILY TOP
     Route: 061
     Dates: start: 20100323, end: 20100330

REACTIONS (1)
  - HAEMOLYSIS [None]
